FAERS Safety Report 20040842 (Version 2)
Quarter: 2021Q4

REPORT INFORMATION
  Report Type: Spontaneous
  Country: JP (occurrence: JP)
  Receive Date: 20211107
  Receipt Date: 20211204
  Transmission Date: 20220303
  Serious: Yes (Other)
  Sender: FDA-Public Use
  Company Number: JP-BAYER-2021A243567

PATIENT

DRUGS (1)
  1. EYLEA [Suspect]
     Active Substance: AFLIBERCEPT
     Indication: Neovascular age-related macular degeneration
     Dosage: UNK

REACTIONS (16)
  - Myocardial infarction [Unknown]
  - Cerebral infarction [Unknown]
  - Retinal haemorrhage [Unknown]
  - Retinal pigment epithelial tear [Unknown]
  - Macular hole [Unknown]
  - Cataract [Unknown]
  - Vitreous haemorrhage [Unknown]
  - Macular degeneration [Unknown]
  - Subretinal fluid [Unknown]
  - Retinal oedema [Unknown]
  - Macular fibrosis [Unknown]
  - Intraocular pressure increased [Unknown]
  - Illness [Unknown]
  - Macular scar [Unknown]
  - Visual acuity reduced [Unknown]
  - Therapeutic product effect incomplete [Unknown]
